FAERS Safety Report 9014710 (Version 1)
Quarter: 2013Q1

REPORT INFORMATION
  Report Type: Spontaneous
  Country: DE (occurrence: DE)
  Receive Date: 20130115
  Receipt Date: 20130115
  Transmission Date: 20140127
  Serious: Yes (Death, Life-Threatening, Hospitalization, Disabling, Other)
  Sender: FDA-Public Use
  Company Number: DE-009507513-2012SP033741

PATIENT
  Age: 54 Year
  Sex: Female
  Weight: 70 kg

DRUGS (1)
  1. ESMERON [Suspect]
     Indication: INDUCTION OF ANAESTHESIA
     Dosage: 30 MG, UNK
     Route: 042
     Dates: start: 20120201, end: 20120201

REACTIONS (4)
  - Brain death [Fatal]
  - Anaphylactic reaction [Fatal]
  - Endotracheal intubation [Fatal]
  - Pyrexia [Fatal]
